FAERS Safety Report 9341212 (Version 1)
Quarter: 2013Q2

REPORT INFORMATION
  Report Type: Spontaneous
  Country: US (occurrence: US)
  Receive Date: 20130611
  Receipt Date: 20130611
  Transmission Date: 20140414
  Serious: Yes (Other)
  Sender: FDA-Public Use
  Company Number: US-AMGEN-USASP2013040543

PATIENT
  Age: 54 Year
  Sex: Male
  Weight: 106.58 kg

DRUGS (6)
  1. ENBREL [Suspect]
     Indication: PRODUCT USED FOR UNKNOWN INDICATION
     Dosage: 50 MG, QWK
     Route: 058
  2. ORENCIA [Concomitant]
     Indication: RHEUMATOID ARTHRITIS
     Dosage: 125 MG/ML, UNK
  3. METHOTREXATE [Concomitant]
     Dosage: 2.5 MG, UNK
  4. LISINOPRIL [Concomitant]
     Dosage: 20 MG, UNK
  5. FOLIC ACID [Concomitant]
     Dosage: UNK
  6. VITAMIN D                          /00107901/ [Concomitant]
     Dosage: 2000 UNIT, UNK

REACTIONS (1)
  - Prostate cancer [Unknown]
